FAERS Safety Report 9613366 (Version 1)
Quarter: 2013Q4

REPORT INFORMATION
  Report Type: Report from Study
  Country: US (occurrence: US)
  Receive Date: 20131010
  Receipt Date: 20131010
  Transmission Date: 20140711
  Serious: Yes (Death)
  Sender: FDA-Public Use
  Company Number: US-ROCHE-1287122

PATIENT
  Sex: Female

DRUGS (11)
  1. AVASTIN [Suspect]
     Indication: COLORECTAL CANCER METASTATIC
     Dosage: 600MG EVERY 2 WEEKS
     Route: 042
     Dates: start: 20121107
  2. METFORMIN [Concomitant]
     Indication: DIABETES MELLITUS
  3. FLUOROURACIL [Concomitant]
  4. TYLENOL #3 (UNITED STATES) [Concomitant]
  5. LISINOPRIL [Concomitant]
  6. HYDROCHLOROTHIAZIDE [Concomitant]
  7. ATENOLOL [Concomitant]
  8. OXYCONTIN [Concomitant]
  9. FOLINIC ACID [Concomitant]
  10. IRINOTECAN [Concomitant]
  11. OXALIPLATIN [Concomitant]

REACTIONS (1)
  - Death [Fatal]
